FAERS Safety Report 5749310-6 (Version None)
Quarter: 2008Q2

REPORT INFORMATION
  Report Type: 
  Country: None (occurrence: None)
  Receive Date: 20080527
  Receipt Date: 20080521
  Transmission Date: 20081010
  Serious: Yes (Other)
  Sender: FDA-Public Use
  Company Number: B0522088A

PATIENT
  Sex: Male

DRUGS (1)
  1. NIQUITIN CQ CLEAR 21MG [Suspect]
     Indication: DRUG USE FOR UNKNOWN INDICATION
     Dosage: 21MG PER DAY
     Route: 062

REACTIONS (4)
  - MALAISE [None]
  - PALLOR [None]
  - SYNCOPE [None]
  - VOMITING [None]
